FAERS Safety Report 5901712-0 (Version None)
Quarter: 2008Q3

REPORT INFORMATION
  Report Type: 
  Country: None (occurrence: None)
  Receive Date: 20080929
  Receipt Date: 20080925
  Transmission Date: 20090109
  Serious: Yes (Other)
  Sender: FDA-Public Use
  Company Number: B0536166A

PATIENT
  Age: 62 Year
  Sex: Male

DRUGS (5)
  1. EUCARDIC [Suspect]
     Indication: CARDIAC FAILURE
     Dosage: 6.25MG TWICE PER DAY
     Route: 048
     Dates: start: 20030101
  2. ASPIRIN [Concomitant]
  3. OMEPRAZOLE [Concomitant]
  4. SPIRONOLACTONE [Concomitant]
  5. SIMVASTATIN [Concomitant]

REACTIONS (1)
  - ABNORMAL DREAMS [None]
